FAERS Safety Report 10265740 (Version 2)
Quarter: 2014Q2

REPORT INFORMATION
  Report Type: Report from Study
  Country: AU (occurrence: AU)
  Receive Date: 20140627
  Receipt Date: 20140627
  Transmission Date: 20141212
  Serious: Yes (Other)
  Sender: FDA-Public Use
  Company Number: AU-SA-2013SA119327

PATIENT
  Sex: Female

DRUGS (3)
  1. AUBAGIO [Suspect]
     Indication: MULTIPLE SCLEROSIS
     Route: 048
     Dates: start: 20131115, end: 201405
  2. ORAL CONTRACEPTIVE NOS [Concomitant]
     Route: 048
  3. IBUPROFEN [Concomitant]

REACTIONS (7)
  - Nuclear magnetic resonance imaging abnormal [Unknown]
  - Constipation [Unknown]
  - Mood swings [Unknown]
  - Alopecia [Unknown]
  - Nausea [Recovering/Resolving]
  - Headache [Recovering/Resolving]
  - Diarrhoea [Unknown]
